FAERS Safety Report 14600357 (Version 1)
Quarter: 2018Q1

REPORT INFORMATION
  Report Type: Spontaneous
  Country: CN (occurrence: CN)
  Receive Date: 20180305
  Receipt Date: 20180305
  Transmission Date: 20180509
  Serious: Yes (Hospitalization, Other)
  Sender: FDA-Public Use
  Company Number: CN-MYLANLABS-2018M1013865

PATIENT
  Age: 23 Year
  Sex: Female

DRUGS (9)
  1. SUXAMETHONIUM [Concomitant]
     Active Substance: SUCCINYLCHOLINE
     Indication: INDUCTION OF ANAESTHESIA
     Dosage: 100MG
     Route: 065
  2. ATRACURIUM [Suspect]
     Active Substance: ATRACURIUM
     Indication: CAESAREAN SECTION
     Dosage: 25MG
     Route: 065
  3. SUFENTANIL [Concomitant]
     Active Substance: SUFENTANIL
     Dosage: 5 MICROG
     Route: 042
  4. KETAMINE [Suspect]
     Active Substance: KETAMINE
     Indication: INDUCTION OF ANAESTHESIA
     Dosage: 60MG
     Route: 065
  5. SUFENTANIL [Concomitant]
     Active Substance: SUFENTANIL
     Indication: PRODUCT USED FOR UNKNOWN INDICATION
     Dosage: 15 MICROG
     Route: 042
  6. REMIFENTANIL [Concomitant]
     Active Substance: REMIFENTANIL
     Indication: MAINTENANCE OF ANAESTHESIA
     Dosage: 0.15 MICROG/KG/MIN
     Route: 065
  7. MIDAZOLAM [Concomitant]
     Active Substance: MIDAZOLAM HYDROCHLORIDE
     Indication: PRODUCT USED FOR UNKNOWN INDICATION
     Dosage: 2MG
     Route: 042
  8. SEVOFLURANE. [Concomitant]
     Active Substance: SEVOFLURANE
     Indication: MAINTENANCE OF ANAESTHESIA
     Dosage: UNK
     Route: 065
  9. PROPOFOL. [Concomitant]
     Active Substance: PROPOFOL
     Indication: INDUCTION OF ANAESTHESIA
     Dosage: 120MG
     Route: 065

REACTIONS (2)
  - Thyrotoxic crisis [Recovered/Resolved]
  - Maternal exposure during delivery [Recovered/Resolved]
